FAERS Safety Report 9266963 (Version 1)
Quarter: 2013Q2

REPORT INFORMATION
  Report Type: Spontaneous
  Country: US (occurrence: US)
  Receive Date: 20130502
  Receipt Date: 20130502
  Transmission Date: 20140414
  Serious: No
  Sender: FDA-Public Use
  Company Number: US-PFIZER INC-2013133204

PATIENT
  Sex: Male

DRUGS (3)
  1. LIPITOR [Suspect]
     Dosage: 40 MG, UNK
     Dates: start: 201201
  2. LIPITOR [Suspect]
     Dosage: 80 MG, UNK
  3. LIPITOR [Suspect]
     Dosage: 40 MG, UNK

REACTIONS (4)
  - Drug ineffective [Unknown]
  - Muscle fatigue [Unknown]
  - Fatigue [Unknown]
  - Disturbance in attention [Unknown]
